FAERS Safety Report 6674846-3 (Version None)
Quarter: 2010Q2

REPORT INFORMATION
  Report Type: 
  Country: None (occurrence: None)
  Receive Date: 20100409
  Receipt Date: 20100329
  Transmission Date: 20101027
  Serious: Yes (Hospitalization)
  Sender: FDA-Public Use
  Company Number: IT-JNJFOC-20100308463

PATIENT
  Sex: Male

DRUGS (5)
  1. MYLICONGAS [Suspect]
     Indication: INTENTIONAL OVERDOSE
     Route: 048
  2. FELDENE [Suspect]
     Indication: INTENTIONAL OVERDOSE
     Route: 048
  3. ALPRAZOLAM [Suspect]
     Indication: INTENTIONAL OVERDOSE
     Route: 048
  4. ALCOHOL [Suspect]
     Indication: DRUG USE FOR UNKNOWN INDICATION
  5. CANNABIS [Suspect]
     Indication: DRUG USE FOR UNKNOWN INDICATION

REACTIONS (3)
  - MULTIPLE DRUG OVERDOSE INTENTIONAL [None]
  - SOPOR [None]
  - SPEECH DISORDER [None]
